FAERS Safety Report 16224907 (Version 1)
Quarter: 2019Q2

REPORT INFORMATION
  Report Type: Spontaneous
  Country: US (occurrence: US)
  Receive Date: 20190422
  Receipt Date: 20190422
  Transmission Date: 20190711
  Serious: No
  Sender: FDA-Public Use
  Company Number: US-TEVA-2019-US-1032214

PATIENT

DRUGS (1)
  1. ACTAVIS CLONAZEPAM [Suspect]
     Active Substance: CLONAZEPAM

REACTIONS (3)
  - Chest pain [Unknown]
  - Poor quality sleep [Unknown]
  - Product substitution issue [Unknown]
